FAERS Safety Report 11541000 (Version 4)
Quarter: 2015Q4

REPORT INFORMATION
  Report Type: Spontaneous
  Country: JP (occurrence: JP)
  Receive Date: 20150923
  Receipt Date: 20151030
  Transmission Date: 20160304
  Serious: Yes (Hospitalization, Other)
  Sender: FDA-Public Use
  Company Number: PHJP2015JP016006

PATIENT
  Age: 56 Year
  Sex: Female

DRUGS (8)
  1. PERGOLIDE [Suspect]
     Active Substance: PERGOLIDE
     Indication: PRODUCT USED FOR UNKNOWN INDICATION
     Dosage: 250 UG, UNK
     Route: 065
  2. PERGOLIDE [Suspect]
     Active Substance: PERGOLIDE
     Dosage: 750 UG, UNK
     Route: 065
  3. SELEGILINE [Concomitant]
     Active Substance: SELEGILINE
     Indication: PRODUCT USED FOR UNKNOWN INDICATION
     Dosage: 5 MG, UNK
     Route: 065
  4. SELEGILINE [Concomitant]
     Active Substance: SELEGILINE
     Dosage: 2.5 MG, UNK
     Route: 065
  5. AMANTADINE [Suspect]
     Active Substance: AMANTADINE
     Indication: PARKINSON^S DISEASE
     Dosage: 100 MG, UNK
     Route: 065
  6. AMANTADINE [Suspect]
     Active Substance: AMANTADINE
     Dosage: 150 MG, UNK
     Route: 065
  7. ENTACAPONE. [Suspect]
     Active Substance: ENTACAPONE
     Dosage: 300 MG, UNK
     Route: 065
  8. ENTACAPONE. [Suspect]
     Active Substance: ENTACAPONE
     Indication: PARKINSON^S DISEASE
     Dosage: 400 MG, UNK
     Route: 065

REACTIONS (12)
  - Pain [Recovered/Resolved]
  - Delirium [Recovering/Resolving]
  - Hallucination [Recovered/Resolved]
  - Drug effect decreased [Recovered/Resolved]
  - Rapid eye movements sleep abnormal [Unknown]
  - Hallucination, visual [Unknown]
  - Dyskinesia [Recovered/Resolved]
  - Condition aggravated [Recovered/Resolved]
  - Psychiatric symptom [Recovering/Resolving]
  - Stress [Recovered/Resolved]
  - Panic disorder [Recovered/Resolved]
  - Abnormal dreams [Recovering/Resolving]
